FAERS Safety Report 20807971 (Version 2)
Quarter: 2022Q3

REPORT INFORMATION
  Report Type: Report from Study
  Country: JP (occurrence: JP)
  Receive Date: 20220510
  Receipt Date: 20220715
  Transmission Date: 20221027
  Serious: No
  Sender: FDA-Public Use
  Company Number: JP-GLAXOSMITHKLINE-JP2022JPN051039

PATIENT

DRUGS (6)
  1. SOTROVIMAB [Suspect]
     Active Substance: SOTROVIMAB
     Indication: COVID-19
     Dosage: 500 MG, 200 ML/H (100ML/30MIN)
     Route: 041
     Dates: start: 20220316
  2. ACETAMINOPHEN [Suspect]
     Active Substance: ACETAMINOPHEN
     Indication: COVID-19
     Dosage: UNK
     Route: 063
  3. EPRAZINONE [Suspect]
     Active Substance: EPRAZINONE
     Indication: COVID-19
     Dosage: UNK
     Route: 063
  4. CARBOCYSTEINE [Suspect]
     Active Substance: CARBOCYSTEINE
     Indication: COVID-19
     Dosage: UNK
     Route: 063
  5. TRANEXAMIC ACID [Suspect]
     Active Substance: TRANEXAMIC ACID
     Indication: COVID-19
     Dosage: UNK
     Route: 063
  6. HERBALS [Suspect]
     Active Substance: HERBALS
     Indication: COVID-19
     Dosage: UNK
     Route: 063

REACTIONS (1)
  - Exposure via breast milk [Unknown]
